FAERS Safety Report 7445252-9 (Version None)
Quarter: 2011Q2

REPORT INFORMATION
  Report Type: 
  Country: None (occurrence: None)
  Receive Date: 20110429
  Receipt Date: 20110427
  Transmission Date: 20111010
  Serious: Yes (Death, Hospitalization)
  Sender: FDA-Public Use
  Company Number: US-PFIZER INC-2011045711

PATIENT
  Sex: Female
  Weight: 53.1 kg

DRUGS (8)
  1. CLONAZEPAM [Concomitant]
  2. NEULASTA [Concomitant]
     Dosage: UNK
     Dates: start: 20101104
  3. DOXORUBICIN HCL [Suspect]
     Indication: LEIOMYOSARCOMA METASTATIC
     Dosage: 75 MG/M2, DAY 1 OF A 21 DAY CYCLE
     Route: 042
     Dates: start: 20101020, end: 20101107
  4. MIRTAZAPINE [Concomitant]
  5. PREDNISONE [Concomitant]
  6. PROCHLORPERAZINE [Concomitant]
  7. OXYCODONE [Concomitant]
  8. PDGFRA [Suspect]
     Indication: LEIOMYOSARCOMA METASTATIC
     Dosage: 15 MG/KG, DAYS 1AND 8 OF A 21 DAYS CYCLE
     Route: 042
     Dates: start: 20101020, end: 20101107

REACTIONS (3)
  - DISEASE PROGRESSION [None]
  - SMALL INTESTINAL OBSTRUCTION [None]
  - LEIOMYOSARCOMA METASTATIC [None]
